FAERS Safety Report 16936141 (Version 3)
Quarter: 2020Q2

REPORT INFORMATION
  Report Type: Spontaneous
  Country: US (occurrence: US)
  Receive Date: 20191018
  Receipt Date: 20200421
  Transmission Date: 20200713
  Serious: Yes (Other)
  Sender: FDA-Public Use
  Company Number: US-INSMED, INC.-US-INS-19-02395

PATIENT
  Sex: Female
  Weight: 88.9 kg

DRUGS (3)
  1. LAMIRA NEBULIZER SYSTEM [Suspect]
     Active Substance: DEVICE
  2. ARIKAYCE [Suspect]
     Active Substance: AMIKACIN
     Indication: MYCOBACTERIUM AVIUM COMPLEX INFECTION
     Route: 055
     Dates: start: 20190621
  3. ARIKAYCE [Suspect]
     Active Substance: AMIKACIN
     Indication: CHRONIC OBSTRUCTIVE PULMONARY DISEASE

REACTIONS (7)
  - Dysphonia [Unknown]
  - Cough [Not Recovered/Not Resolved]
  - Sinus congestion [Unknown]
  - Musculoskeletal chest pain [Unknown]
  - Product dose omission [Unknown]
  - Chromaturia [Unknown]
  - Secretion discharge [Unknown]

NARRATIVE: CASE EVENT DATE: 2019
